FAERS Safety Report 6727827-5 (Version None)
Quarter: 2010Q2

REPORT INFORMATION
  Report Type: 
  Country: None (occurrence: None)
  Receive Date: 20100514
  Receipt Date: 20100514
  Transmission Date: 20101027
  Serious: Yes (Other)
  Sender: FDA-Public Use
  Company Number: None

PATIENT
  Age: 37 Year
  Sex: Female
  Weight: 72.5755 kg

DRUGS (1)
  1. ULESFIA [Suspect]
     Indication: LICE INFESTATION
     Dosage: 227GM -QUANTITY 908- ONCE TOP
     Route: 061
     Dates: start: 20100430, end: 20100430

REACTIONS (7)
  - AURICULAR SWELLING [None]
  - JOINT RANGE OF MOTION DECREASED [None]
  - LOCAL SWELLING [None]
  - MASTITIS [None]
  - PRURITUS [None]
  - SKIN DISORDER [None]
  - SWELLING FACE [None]
